FAERS Safety Report 4723178-9 (Version None)
Quarter: 2005Q3

REPORT INFORMATION
  Report Type: 
  Country: None (occurrence: None)
  Receive Date: 20050719
  Receipt Date: 20040820
  Transmission Date: 20060218
  Serious: Yes (Hospitalization, Other)
  Sender: FDA-Public Use
  Company Number: 2004230430US

PATIENT
  Age: 74 Year
  Sex: Female

DRUGS (12)
  1. CELEBREX [Suspect]
     Indication: OSTEOARTHRITIS
     Dosage: 100 MG, BID, UNK
     Route: 065
     Dates: start: 19990423
  2. PREMARIN [Concomitant]
  3. ZESTRIL [Concomitant]
  4. ATIVAN [Concomitant]
  5. AMBIEN [Concomitant]
  6. EVISTA [Concomitant]
  7. FOSAMAX [Concomitant]
  8. TICLID [Concomitant]
  9. CUMADIN (WARFARIN SODIUM) [Concomitant]
  10. PLAVIX [Concomitant]
  11. RESTORIL [Concomitant]
  12. CARDIZEM [Concomitant]

REACTIONS (2)
  - CEREBROVASCULAR ACCIDENT [None]
  - DIARRHOEA [None]
